FAERS Safety Report 9157666 (Version 1)
Quarter: 2013Q1

REPORT INFORMATION
  Report Type: Spontaneous
  Country: AT (occurrence: AT)
  Receive Date: 20130312
  Receipt Date: 20130312
  Transmission Date: 20140127
  Serious: Yes (Other)
  Sender: FDA-Public Use
  Company Number: PHHY2013AT022978

PATIENT
  Age: 54 Year
  Sex: Female

DRUGS (2)
  1. CIPROFLOXACIN [Suspect]
     Indication: PROPHYLAXIS
     Dates: start: 20130303, end: 20130305
  2. DIOVAN [Concomitant]

REACTIONS (5)
  - Respiratory disorder [Recovered/Resolved]
  - Eye swelling [Recovered/Resolved]
  - Extrasystoles [Recovered/Resolved]
  - Hypertension [Recovered/Resolved]
  - Nausea [Recovered/Resolved]
